FAERS Safety Report 5724976-5 (Version None)
Quarter: 2008Q2

REPORT INFORMATION
  Report Type: 
  Country: None (occurrence: None)
  Receive Date: 20080501
  Receipt Date: 20080424
  Transmission Date: 20081010
  Serious: Yes (Disabling, Other)
  Sender: FDA-Public Use
  Company Number: JP-AVENTIS-200812247GDDC

PATIENT
  Age: 28 Year
  Sex: Female

DRUGS (5)
  1. ISCOTIN                            /00030201/ [Suspect]
     Indication: PULMONARY TUBERCULOSIS
     Route: 048
     Dates: start: 20051003, end: 20060120
  2. RIFADIN [Suspect]
     Indication: PULMONARY TUBERCULOSIS
     Route: 048
     Dates: start: 20051003, end: 20060120
  3. PYRAMIDE [Suspect]
     Indication: PULMONARY TUBERCULOSIS
     Route: 048
     Dates: start: 20051003, end: 20051202
  4. EBUTOL                             /00022301/ [Suspect]
     Indication: PULMONARY TUBERCULOSIS
     Route: 048
     Dates: start: 20051003, end: 20051202
  5. B6 [Concomitant]
     Route: 048
     Dates: start: 20051003, end: 20060404

REACTIONS (4)
  - HEPATIC FUNCTION ABNORMAL [None]
  - NEUTROPHIL COUNT DECREASED [None]
  - OPTIC NEURITIS [None]
  - SCOTOMA [None]
